FAERS Safety Report 6044422-4 (Version None)
Quarter: 2009Q1

REPORT INFORMATION
  Report Type: 
  Country: None (occurrence: None)
  Receive Date: 20090115
  Receipt Date: 20090115
  Transmission Date: 20090719
  Serious: No
  Sender: FDA-Public Use
  Company Number: None

PATIENT
  Age: 47 Year
  Sex: Female
  Weight: 83.5 kg

DRUGS (1)
  1. VARENICLINE [Suspect]
     Indication: TOBACCO ABUSE
     Dosage: 1MG BID PO
     Route: 048
     Dates: start: 20081017, end: 20081116

REACTIONS (2)
  - DEPRESSION [None]
  - MOOD ALTERED [None]
